FAERS Safety Report 9515411 (Version 1)
Quarter: 2013Q1

REPORT INFORMATION
  Report Type: Spontaneous
  Country: US (occurrence: None)
  Receive Date: 20130305
  Receipt Date: 20130305
  Transmission Date: 20140127
  Serious: Yes (Other)
  Sender: FDA-Public Use
  Company Number: 163-21880-12112674

PATIENT
  Age: 67 Year
  Sex: Male

DRUGS (5)
  1. REVLIMID [Suspect]
     Indication: PLASMA CELL MYELOMA
     Dosage: 10 MG, 21 IN 28 D, PO
     Route: 048
     Dates: start: 20120508
  2. COUMADIN (WARFARIN SODIUM) (UNKNOWN) [Concomitant]
  3. ATIVAN (LORAZEPAM) (UNKNOWN) [Concomitant]
  4. AMBIEN (ZOLPIDEM TARTRATE) (UNKNOWN) [Concomitant]
  5. ACYCLOVIR (ACICLOVIR) (UNKNOWN) [Concomitant]

REACTIONS (3)
  - Neuropathy peripheral [None]
  - Pyrexia [None]
  - Respiratory tract congestion [None]
